FAERS Safety Report 14147383 (Version 2)
Quarter: 2017Q4

REPORT INFORMATION
  Report Type: Report from Study
  Country: US (occurrence: US)
  Receive Date: 20171031
  Receipt Date: 20171128
  Transmission Date: 20180321
  Serious: Yes (Other)
  Sender: FDA-Public Use
  Company Number: PHEH2017US035059

PATIENT
  Age: 51 Year
  Sex: Female
  Weight: 51 kg

DRUGS (2)
  1. ILARIS [Suspect]
     Active Substance: CANAKINUMAB
     Indication: FAMILIAL COLD AUTOINFLAMMATORY SYNDROME
     Dosage: 150 MG, UNK
     Route: 058
     Dates: start: 20170329, end: 20170527
  2. ILARIS [Suspect]
     Active Substance: CANAKINUMAB
     Indication: CRYOPYRIN ASSOCIATED PERIODIC SYNDROME
     Dosage: 150 MG, Q8H
     Route: 058
     Dates: start: 20171020

REACTIONS (5)
  - Rash vesicular [Not Recovered/Not Resolved]
  - Petechiae [Unknown]
  - Pain [Unknown]
  - Purpura [Not Recovered/Not Resolved]
  - Erythema [Unknown]

NARRATIVE: CASE EVENT DATE: 20170407
